FAERS Safety Report 10394043 (Version 2)
Quarter: 2014Q3

REPORT INFORMATION
  Report Type: Report from Study
  Country: US (occurrence: US)
  Receive Date: 20140819
  Receipt Date: 20140925
  Transmission Date: 20150326
  Serious: Yes (Hospitalization)
  Sender: FDA-Public Use
  Company Number: US-EXELIXIS-CABO-14004632

PATIENT
  Age: 45 Year
  Sex: Male

DRUGS (5)
  1. FLEXERIL [Concomitant]
     Active Substance: CYCLOBENZAPRINE HYDROCHLORIDE
  2. HYDROMORPHONE [Concomitant]
     Active Substance: HYDROMORPHONE
  3. CITRICAL [Concomitant]
     Active Substance: CALCIUM CITRATE
  4. CABOZANTINIB [Suspect]
     Active Substance: CABOZANTINIB
     Indication: PROSTATE CANCER
     Dosage: 140 MG, QD
     Route: 048
     Dates: start: 20140402, end: 201406
  5. IRON [Concomitant]
     Active Substance: IRON

REACTIONS (3)
  - Pain [Unknown]
  - Off label use [Unknown]
  - Drug ineffective for unapproved indication [Unknown]

NARRATIVE: CASE EVENT DATE: 201408
